FAERS Safety Report 21087847 (Version 1)
Quarter: 2022Q3

REPORT INFORMATION
  Report Type: Spontaneous
  Country: US (occurrence: None)
  Receive Date: 20220714
  Receipt Date: 20220714
  Transmission Date: 20221027
  Serious: Yes (Disabling)
  Sender: FDA-Public Use
  Company Number: None

PATIENT
  Sex: Female
  Weight: 76.5 kg

DRUGS (11)
  1. PREGABALIN [Suspect]
     Active Substance: PREGABALIN
     Indication: Spinal column injury
  2. METHYLPREDNISOLONE [Suspect]
     Active Substance: METHYLPREDNISOLONE
  3. CELECOXIB [Suspect]
     Active Substance: CELECOXIB
  4. METHOCARBAMOL [Suspect]
     Active Substance: METHOCARBAMOL
  5. OMEPRAZOLE [Suspect]
     Active Substance: OMEPRAZOLE
  6. LIDOCAINE [Suspect]
     Active Substance: LIDOCAINE
  7. DICLOFENAC [Suspect]
     Active Substance: DICLOFENAC
  8. IBUPROFEN [Concomitant]
     Active Substance: IBUPROFEN
  9. TIGER BALM [Concomitant]
     Active Substance: CAMPHOR (SYNTHETIC)\CAPSICUM OLEORESIN\MENTHOL\METHYL SALICYLATE
  10. ALEVE [Concomitant]
     Active Substance: NAPROXEN SODIUM
  11. BIOFREEZE [Concomitant]
     Active Substance: MENTHOL

REACTIONS (11)
  - Chest discomfort [None]
  - Dizziness [None]
  - Dizziness [None]
  - Cough [None]
  - Neck pain [None]
  - Back pain [None]
  - Asthenia [None]
  - Nausea [None]
  - Ageusia [None]
  - Faeces discoloured [None]
  - Gastric disorder [None]
